FAERS Safety Report 9831496 (Version 1)
Quarter: 2014Q1

REPORT INFORMATION
  Report Type: Spontaneous
  Country: US (occurrence: US)
  Receive Date: 20140121
  Receipt Date: 20140121
  Transmission Date: 20141002
  Serious: No
  Sender: FDA-Public Use
  Company Number: US-JNJFOC-20140108569

PATIENT
  Age: 58 Year
  Sex: Female
  Weight: 53.52 kg

DRUGS (2)
  1. DURAGESIC [Suspect]
     Indication: PAIN
     Route: 062
     Dates: start: 200912
  2. ROXICODONE [Concomitant]
     Indication: PAIN
     Route: 048

REACTIONS (6)
  - Wrong technique in drug usage process [Unknown]
  - Product quality issue [Not Recovered/Not Resolved]
  - Product formulation issue [Unknown]
  - Somnolence [Not Recovered/Not Resolved]
  - Product quality issue [Not Recovered/Not Resolved]
  - Chills [Not Recovered/Not Resolved]
